FAERS Safety Report 25366166 (Version 1)
Quarter: 2025Q2

REPORT INFORMATION
  Report Type: Report from Study
  Country: CA (occurrence: CA)
  Receive Date: 20250528
  Receipt Date: 20250528
  Transmission Date: 20250716
  Serious: Yes (Other)
  Sender: Alvotech
  Company Number: CA-JAMP PHARMA CORPORATION-2023-JAM-CA-01343

PATIENT
  Sex: Male

DRUGS (1)
  1. SIMLANDI [Suspect]
     Active Substance: ADALIMUMAB-RYVK
     Indication: Rheumatoid arthritis
     Dosage: 40 MILLIGRAM, EVERY OTHER WEEK
     Route: 058
     Dates: start: 20230518

REACTIONS (4)
  - Psoriatic arthropathy [Unknown]
  - Adverse event [Unknown]
  - Musculoskeletal stiffness [Recovering/Resolving]
  - Localised infection [Unknown]
